FAERS Safety Report 14098038 (Version 1)
Quarter: 2017Q4

REPORT INFORMATION
  Report Type: Spontaneous
  Country: US (occurrence: US)
  Receive Date: 20171016
  Receipt Date: 20171016
  Transmission Date: 20180321
  Serious: No
  Sender: FDA-Public Use
  Company Number: US-AMGEN-USASP2017022904

PATIENT
  Age: 77 Year
  Sex: Female

DRUGS (6)
  1. CICLOPIROX. [Concomitant]
     Active Substance: CICLOPIROX
     Dosage: UNK
  2. PROLIA [Suspect]
     Active Substance: DENOSUMAB
     Indication: OSTEOPOROSIS
     Dosage: 60 MG, Q6MO
     Route: 058
     Dates: start: 201508
  3. DIOVAN [Concomitant]
     Active Substance: VALSARTAN
     Dosage: UNK
  4. FELODIPINE. [Concomitant]
     Active Substance: FELODIPINE
     Dosage: UNK
  5. FLUOCIN [Concomitant]
     Active Substance: FLUOCINOLONE ACETONIDE
     Dosage: UNK
  6. ESCITALOPRAM [Concomitant]
     Active Substance: ESCITALOPRAM OXALATE
     Dosage: UNK

REACTIONS (2)
  - Blood pressure increased [Unknown]
  - Blood cholesterol increased [Unknown]

NARRATIVE: CASE EVENT DATE: 20170203
